FAERS Safety Report 16929436 (Version 1)
Quarter: 2019Q4

REPORT INFORMATION
  Report Type: Spontaneous
  Country: GB (occurrence: GB)
  Receive Date: 20191017
  Receipt Date: 20191017
  Transmission Date: 20200122
  Serious: Yes (Other)
  Sender: FDA-Public Use
  Company Number: GB-ACCORD-157720

PATIENT
  Age: 74 Year
  Sex: Female
  Weight: 70.76 kg

DRUGS (11)
  1. LOSARTAN. [Concomitant]
     Active Substance: LOSARTAN
  2. TOFACITINIB [Concomitant]
     Active Substance: TOFACITINIB
  3. ACETYLSALICYLIC ACID [Concomitant]
     Active Substance: ASPIRIN
  4. SYSTANE (HYPROMELLOSE 2910 (4000 MPA.S)) [Concomitant]
     Active Substance: HYPROMELLOSE 2910 (4000 MPA.S)
  5. HYDROXYCARBAMIDE [Suspect]
     Active Substance: HYDROXYUREA
     Indication: ESSENTIAL THROMBOCYTHAEMIA
     Route: 048
     Dates: start: 20190404
  6. OMEPRAZOLE. [Concomitant]
     Active Substance: OMEPRAZOLE
  7. ALLOPURINOL. [Suspect]
     Active Substance: ALLOPURINOL
     Indication: ESSENTIAL THROMBOCYTHAEMIA
     Dosage: 1 TABLET PER DAY,LAST RECEIVED 02-MAY-2019
     Route: 048
     Dates: start: 20190404
  8. NICORANDIL [Concomitant]
     Active Substance: NICORANDIL
  9. ATORVASTATIN [Concomitant]
     Active Substance: ATORVASTATIN
  10. AMLODIPINE [Concomitant]
     Active Substance: AMLODIPINE BESYLATE
  11. BISOPROLOL [Concomitant]
     Active Substance: BISOPROLOL

REACTIONS (3)
  - Arthralgia [Not Recovered/Not Resolved]
  - Off label use [Unknown]
  - Cartilage injury [Unknown]

NARRATIVE: CASE EVENT DATE: 20190407
